FAERS Safety Report 18603862 (Version 2)
Quarter: 2020Q4

REPORT INFORMATION
  Report Type: Spontaneous
  Country: US (occurrence: US)
  Receive Date: 20201211
  Receipt Date: 20201216
  Transmission Date: 20210114
  Serious: No
  Sender: FDA-Public Use
  Company Number: US-JNJFOC-20201208946

PATIENT
  Sex: Female

DRUGS (1)
  1. MENS ROGAINE EXTRA STRENGTH [Suspect]
     Active Substance: MINOXIDIL
     Indication: PRODUCT USED FOR UNKNOWN INDICATION
     Route: 065
     Dates: start: 20200916, end: 2020

REACTIONS (5)
  - Application site pruritus [Unknown]
  - Application site exfoliation [Unknown]
  - Product use issue [Unknown]
  - Off label use [Unknown]
  - Application site erythema [Unknown]

NARRATIVE: CASE EVENT DATE: 2020
